FAERS Safety Report 21634504 (Version 1)
Quarter: 2022Q4

REPORT INFORMATION
  Report Type: Spontaneous
  Country: US (occurrence: None)
  Receive Date: 20221123
  Receipt Date: 20221123
  Transmission Date: 20230113
  Serious: Yes (Disabling, Other)
  Sender: FDA-Public Use
  Company Number: None

PATIENT
  Age: 67 Year
  Sex: Female

DRUGS (1)
  1. PROLIA [Suspect]
     Active Substance: DENOSUMAB
     Indication: Osteoporosis
     Dates: start: 20220422

REACTIONS (8)
  - Bone pain [None]
  - Asthenia [None]
  - Fatigue [None]
  - Lethargy [None]
  - Alopecia [None]
  - Implant site pain [None]
  - Tooth disorder [None]
  - Product complaint [None]

NARRATIVE: CASE EVENT DATE: 20220429
